FAERS Safety Report 8203402 (Version 38)
Quarter: 2019Q3

REPORT INFORMATION
  Report Type: Report from Study
  Country: CA (occurrence: CA)
  Receive Date: 20111027
  Receipt Date: 20190830
  Transmission Date: 20191005
  Serious: Yes (Other)
  Sender: FDA-Public Use
  Company Number: CA-ROCHE-1005605

PATIENT
  Age: 36 Year
  Sex: Female
  Weight: 85 kg

DRUGS (30)
  1. ACTEMRA [Suspect]
     Active Substance: TOCILIZUMAB
     Indication: RHEUMATOID ARTHRITIS
     Route: 042
     Dates: start: 20110315, end: 20120510
  2. ACTEMRA [Suspect]
     Active Substance: TOCILIZUMAB
     Route: 042
     Dates: start: 20150203
  3. ZOPICLONE [Concomitant]
     Active Substance: ZOPICLONE
     Indication: SLEEP DISORDER
     Route: 048
  4. ACTEMRA [Suspect]
     Active Substance: TOCILIZUMAB
     Route: 042
     Dates: start: 20120715
  5. ACTEMRA [Suspect]
     Active Substance: TOCILIZUMAB
     Route: 042
     Dates: start: 201608
  6. ADVAIR HFA [Concomitant]
     Active Substance: FLUTICASONE PROPIONATE\SALMETEROL XINAFOATE
     Route: 055
  7. EFFEXOR [Concomitant]
     Active Substance: VENLAFAXINE HYDROCHLORIDE
     Route: 065
  8. ACTEMRA [Suspect]
     Active Substance: TOCILIZUMAB
     Route: 042
     Dates: start: 20140702, end: 20140725
  9. ECHINACEA [ECHINACEA SPP.] [Concomitant]
     Route: 065
  10. ACTEMRA [Suspect]
     Active Substance: TOCILIZUMAB
     Dosage: LAST DOSE OF ADMINISTRATION: 10/AUG/2012
     Route: 042
     Dates: start: 20120615, end: 20140312
  11. ACTEMRA [Suspect]
     Active Substance: TOCILIZUMAB
     Route: 042
     Dates: start: 20140408, end: 20140604
  12. ACTEMRA [Suspect]
     Active Substance: TOCILIZUMAB
     Route: 042
     Dates: start: 20120617
  13. LORAZEPAM. [Concomitant]
     Active Substance: LORAZEPAM
     Route: 048
  14. ACTEMRA [Suspect]
     Active Substance: TOCILIZUMAB
     Route: 042
     Dates: start: 20170802
  15. RITUXAN [Suspect]
     Active Substance: RITUXIMAB
     Indication: PRODUCT USED FOR UNKNOWN INDICATION
     Dosage: DAY 1 AND 15
     Route: 065
     Dates: start: 20070919, end: 20071017
  16. MINOCYCLINE [Concomitant]
     Active Substance: MINOCYCLINE HYDROCHLORIDE
     Route: 048
  17. MORPHINE [Concomitant]
     Active Substance: MORPHINE
     Indication: PAIN
     Route: 048
  18. TECTA [Concomitant]
     Active Substance: PANTOPRAZOLE MAGNESIUM
  19. GABAPENTIN. [Concomitant]
     Active Substance: GABAPENTIN
  20. ACTEMRA [Suspect]
     Active Substance: TOCILIZUMAB
     Route: 042
     Dates: start: 20121004
  21. VOLTAREN [DICLOFENAC] [Concomitant]
     Active Substance: DICLOFENAC SODIUM
     Indication: RHEUMATOID ARTHRITIS
     Route: 048
  22. VITAMIN C [Concomitant]
     Active Substance: ASCORBIC ACID
     Route: 065
  23. EFFEXOR [Concomitant]
     Active Substance: VENLAFAXINE HYDROCHLORIDE
     Route: 065
  24. ACTEMRA [Suspect]
     Active Substance: TOCILIZUMAB
     Route: 042
     Dates: start: 20140819, end: 20170710
  25. ACTEMRA [Suspect]
     Active Substance: TOCILIZUMAB
     Route: 042
     Dates: start: 20120810
  26. SYNTHROID [Concomitant]
     Active Substance: LEVOTHYROXINE SODIUM
     Indication: THYROID DISORDER
     Route: 048
  27. GABAPENTIN. [Concomitant]
     Active Substance: GABAPENTIN
  28. PREDNISONE. [Concomitant]
     Active Substance: PREDNISONE
     Route: 048
     Dates: end: 201108
  29. PREDNISONE. [Concomitant]
     Active Substance: PREDNISONE
     Route: 048
  30. NUCYNTA [Concomitant]
     Active Substance: TAPENTADOL HYDROCHLORIDE

REACTIONS (50)
  - Food poisoning [Recovered/Resolved]
  - Gastrooesophageal reflux disease [Unknown]
  - Arthralgia [Not Recovered/Not Resolved]
  - Rheumatoid arthritis [Not Recovered/Not Resolved]
  - Blood pressure increased [Unknown]
  - Infusion related reaction [Unknown]
  - Chest pain [Not Recovered/Not Resolved]
  - Ear infection [Unknown]
  - Product prescribing issue [Unknown]
  - Dizziness [Recovered/Resolved]
  - Weight decreased [Unknown]
  - Therapy partial responder [Unknown]
  - Stress [Not Recovered/Not Resolved]
  - Localised infection [Unknown]
  - Adverse drug reaction [Recovered/Resolved]
  - Body temperature increased [Unknown]
  - Pharyngitis streptococcal [Unknown]
  - Pain [Not Recovered/Not Resolved]
  - Pyrexia [Unknown]
  - Vomiting [Unknown]
  - Nodule [Not Recovered/Not Resolved]
  - Adjustment disorder with depressed mood [Not Recovered/Not Resolved]
  - Influenza [Unknown]
  - Musculoskeletal stiffness [Not Recovered/Not Resolved]
  - Vessel puncture site bruise [Recovering/Resolving]
  - Off label use [Unknown]
  - Cholecystectomy [Recovered/Resolved]
  - Platelet count decreased [Not Recovered/Not Resolved]
  - Heart rate increased [Unknown]
  - Pain in extremity [Recovering/Resolving]
  - Nausea [Unknown]
  - Hiatus hernia [Unknown]
  - Shock [Recovered/Resolved]
  - Sensory loss [Recovered/Resolved]
  - Bronchitis [Unknown]
  - Weight decreased [Unknown]
  - Mobility decreased [Not Recovered/Not Resolved]
  - Anxiety [Unknown]
  - Contusion [Not Recovered/Not Resolved]
  - Hypotension [Unknown]
  - Weight increased [Unknown]
  - Diarrhoea [Unknown]
  - Fibromyalgia [Unknown]
  - Immune system disorder [Unknown]
  - Drug ineffective [Unknown]
  - Nasopharyngitis [Recovering/Resolving]
  - Fatigue [Unknown]
  - Inflammation [Recovering/Resolving]
  - Peripheral swelling [Not Recovered/Not Resolved]
  - Inappropriate schedule of product administration [Unknown]

NARRATIVE: CASE EVENT DATE: 201105
